FAERS Safety Report 6141164-1 (Version None)
Quarter: 2009Q2

REPORT INFORMATION
  Report Type: 
  Country: None (occurrence: None)
  Receive Date: 20090401
  Receipt Date: 20090401
  Transmission Date: 20091009
  Serious: Yes (Life-Threatening, Hospitalization)
  Sender: FDA-Public Use
  Company Number: None

PATIENT
  Age: 86 Year
  Sex: Male
  Weight: 77.29 kg

DRUGS (2)
  1. WARFARIN SODIUM [Suspect]
     Indication: ATRIAL FIBRILLATION
     Dosage: 20 MG QWEEK PO
     Route: 048
     Dates: start: 20080306, end: 20080918
  2. NAPROXEN [Suspect]
     Indication: GOUT
     Dosage: 250 MG BID PO
     Route: 048
     Dates: start: 20080827, end: 20080918

REACTIONS (10)
  - ANAEMIA [None]
  - BLOOD URINE PRESENT [None]
  - CONFUSIONAL STATE [None]
  - DECREASED APPETITE [None]
  - DEHYDRATION [None]
  - FLUID INTAKE REDUCED [None]
  - HAEMORRHAGE [None]
  - INTERNATIONAL NORMALISED RATIO INCREASED [None]
  - RENAL FAILURE ACUTE [None]
  - WEIGHT DECREASED [None]
